FAERS Safety Report 20852919 (Version 1)
Quarter: 2022Q2

REPORT INFORMATION
  Report Type: Spontaneous
  Country: US (occurrence: US)
  Receive Date: 20220520
  Receipt Date: 20220520
  Transmission Date: 20220721
  Serious: No
  Sender: FDA-Public Use
  Company Number: US-TARO PHARMACEUTICALS USA INC.-2021TAR01256

PATIENT

DRUGS (1)
  1. AMIODARONE HYDROCHLORIDE [Suspect]
     Active Substance: AMIODARONE HYDROCHLORIDE
     Indication: Heart rate increased
     Dosage: 200 MG, OD
     Route: 048
     Dates: start: 202005

REACTIONS (2)
  - Asthenia [Not Recovered/Not Resolved]
  - Bradykinesia [Not Recovered/Not Resolved]
